FAERS Safety Report 20246756 (Version 1)
Quarter: 2021Q4

REPORT INFORMATION
  Report Type: Spontaneous
  Country: US (occurrence: US)
  Receive Date: 20211229
  Receipt Date: 20211229
  Transmission Date: 20220303
  Serious: Yes (Other)
  Sender: FDA-Public Use
  Company Number: US-GLAXOSMITHKLINE-US2021GSK264292

PATIENT
  Sex: Male

DRUGS (28)
  1. ZANTAC [Suspect]
     Active Substance: RANITIDINE HYDROCHLORIDE
     Indication: Gastrooesophageal reflux disease
     Dosage: UNK, QD
     Route: 065
     Dates: start: 201001, end: 201801
  2. ZANTAC [Suspect]
     Active Substance: RANITIDINE HYDROCHLORIDE
     Indication: Impaired gastric emptying
  3. ZANTAC [Suspect]
     Active Substance: RANITIDINE HYDROCHLORIDE
     Indication: Cyclic vomiting syndrome
  4. ZANTAC [Suspect]
     Active Substance: RANITIDINE HYDROCHLORIDE
     Indication: Gastroenteritis
  5. ZANTAC [Suspect]
     Active Substance: RANITIDINE HYDROCHLORIDE
     Indication: Gastrooesophageal reflux disease
     Dosage: UNK, QD
     Route: 065
     Dates: start: 201001, end: 201801
  6. ZANTAC [Suspect]
     Active Substance: RANITIDINE HYDROCHLORIDE
     Indication: Impaired gastric emptying
  7. ZANTAC [Suspect]
     Active Substance: RANITIDINE HYDROCHLORIDE
     Indication: Cyclic vomiting syndrome
  8. ZANTAC [Suspect]
     Active Substance: RANITIDINE HYDROCHLORIDE
     Indication: Gastroenteritis
  9. RANITIDINE [Suspect]
     Active Substance: RANITIDINE
     Indication: Gastrooesophageal reflux disease
     Dosage: UNK, QD
     Route: 065
     Dates: start: 201001, end: 201801
  10. RANITIDINE [Suspect]
     Active Substance: RANITIDINE
     Indication: Impaired gastric emptying
  11. RANITIDINE [Suspect]
     Active Substance: RANITIDINE
     Indication: Cyclic vomiting syndrome
  12. RANITIDINE [Suspect]
     Active Substance: RANITIDINE
     Indication: Gastroenteritis
  13. RANITIDINE [Suspect]
     Active Substance: RANITIDINE
     Indication: Gastrooesophageal reflux disease
     Dosage: UNK, QD
     Route: 065
     Dates: start: 201001, end: 201801
  14. RANITIDINE [Suspect]
     Active Substance: RANITIDINE
     Indication: Impaired gastric emptying
  15. RANITIDINE [Suspect]
     Active Substance: RANITIDINE
     Indication: Cyclic vomiting syndrome
  16. RANITIDINE [Suspect]
     Active Substance: RANITIDINE
     Indication: Gastroenteritis
  17. ZANTAC [Suspect]
     Active Substance: RANITIDINE HYDROCHLORIDE
     Indication: Gastrooesophageal reflux disease
     Dosage: UNK, QD
     Route: 065
     Dates: start: 201001, end: 201801
  18. ZANTAC [Suspect]
     Active Substance: RANITIDINE HYDROCHLORIDE
     Indication: Impaired gastric emptying
  19. ZANTAC [Suspect]
     Active Substance: RANITIDINE HYDROCHLORIDE
     Indication: Cyclic vomiting syndrome
  20. ZANTAC [Suspect]
     Active Substance: RANITIDINE HYDROCHLORIDE
     Indication: Gastroenteritis
  21. RANITIDINE [Suspect]
     Active Substance: RANITIDINE
     Indication: Gastrooesophageal reflux disease
     Dosage: UNK, QD
     Route: 065
     Dates: start: 201001, end: 201801
  22. RANITIDINE [Suspect]
     Active Substance: RANITIDINE
     Indication: Impaired gastric emptying
  23. RANITIDINE [Suspect]
     Active Substance: RANITIDINE
     Indication: Cyclic vomiting syndrome
  24. RANITIDINE [Suspect]
     Active Substance: RANITIDINE
     Indication: Gastroenteritis
  25. RANITIDINE [Suspect]
     Active Substance: RANITIDINE
     Indication: Gastrooesophageal reflux disease
     Dosage: UNK, QD
     Route: 065
     Dates: start: 201001, end: 201801
  26. RANITIDINE [Suspect]
     Active Substance: RANITIDINE
     Indication: Impaired gastric emptying
  27. RANITIDINE [Suspect]
     Active Substance: RANITIDINE
     Indication: Cyclic vomiting syndrome
  28. RANITIDINE [Suspect]
     Active Substance: RANITIDINE
     Indication: Gastroenteritis

REACTIONS (1)
  - Gastrointestinal carcinoma [Unknown]
